FAERS Safety Report 9256277 (Version 1)
Quarter: 2013Q2

REPORT INFORMATION
  Report Type: Spontaneous
  Country: US (occurrence: US)
  Receive Date: 20130425
  Receipt Date: 20130425
  Transmission Date: 20140414
  Serious: No
  Sender: FDA-Public Use
  Company Number: US-AMGEN-USASP2012050267

PATIENT
  Age: 41 Year
  Sex: Female
  Weight: 75 kg

DRUGS (9)
  1. NEULASTA [Suspect]
     Indication: CHEMOTHERAPY
     Dosage: 6 MG, UNK
     Route: 058
     Dates: start: 20120724
  2. DECADRON                           /00016001/ [Concomitant]
     Indication: BREAST CANCER
     Dosage: 10 MG, Q2WK
     Route: 042
     Dates: start: 20120723
  3. ALOXI [Concomitant]
     Indication: BREAST CANCER
     Dosage: 0.25 MG, Q2WK
     Route: 042
     Dates: start: 20120723
  4. EMEND                              /01627301/ [Concomitant]
     Indication: BREAST CANCER
     Dosage: 150 MG, Q2WK
     Route: 042
     Dates: start: 20120723
  5. CELEXA                             /00582602/ [Concomitant]
  6. ALDOMET                            /00000101/ [Concomitant]
  7. CYTOXAN [Concomitant]
     Indication: BREAST CANCER
     Dosage: 1080 MG, Q2WK
     Route: 042
     Dates: start: 20120723
  8. TAXOL [Concomitant]
  9. ADRIAMYCIN                         /00330901/ [Concomitant]
     Indication: BREAST CANCER
     Dosage: 108 MG, Q2WK
     Route: 042
     Dates: start: 20120723

REACTIONS (7)
  - Pain in extremity [Recovered/Resolved]
  - Hypokinesia [Recovered/Resolved]
  - Abdominal pain [Unknown]
  - Musculoskeletal stiffness [Recovered/Resolved]
  - Muscle spasms [Recovered/Resolved]
  - Myalgia [Recovered/Resolved]
  - Bone pain [Unknown]
